FAERS Safety Report 25090037 (Version 1)
Quarter: 2025Q1

REPORT INFORMATION
  Report Type: Report from Study
  Country: ZA (occurrence: ZA)
  Receive Date: 20250318
  Receipt Date: 20250318
  Transmission Date: 20250409
  Serious: Yes (Hospitalization, Other)
  Sender: ABBVIE
  Company Number: ZA-ABBVIE-6177281

PATIENT
  Sex: Male

DRUGS (1)
  1. RINVOQ [Suspect]
     Active Substance: UPADACITINIB
     Indication: Crohn^s disease
     Dosage: 30 MILLIGRAM
     Route: 048
     Dates: start: 20241122

REACTIONS (9)
  - Brain neoplasm [Unknown]
  - Nervous system disorder [Unknown]
  - Nerve injury [Unknown]
  - Stress [Unknown]
  - Crohn^s disease [Unknown]
  - Back injury [Unknown]
  - Spinal disorder [Unknown]
  - Peroneal nerve palsy [Unknown]
  - Back disorder [Unknown]

NARRATIVE: CASE EVENT DATE: 20240101
